FAERS Safety Report 8900679 (Version 1)
Quarter: 2012Q4

REPORT INFORMATION
  Report Type: 
  Country: GB (occurrence: GB)
  Receive Date: 20121109
  Receipt Date: 20121109
  Transmission Date: 20130627
  Serious: Yes (Other)
  Sender: FDA-Public Use
  Company Number: GB-PFIZER INC-2012278475

PATIENT
  Age: 71 Year
  Sex: Male
  Weight: 70.1 kg

DRUGS (2)
  1. PREGABALIN [Suspect]
     Indication: SCIATICA
     Route: 048
  2. AMITRIPTYLINE [Concomitant]

REACTIONS (1)
  - Peripheral coldness [Recovered/Resolved]
